FAERS Safety Report 7380502-9 (Version None)
Quarter: 2011Q1

REPORT INFORMATION
  Report Type: 
  Country: None (occurrence: None)
  Receive Date: 20110329
  Receipt Date: 20090223
  Transmission Date: 20110831
  Serious: Yes (Hospitalization, Other)
  Sender: FDA-Public Use
  Company Number: US-BAYER-201040179NA

PATIENT
  Sex: Female
  Weight: 81.633 kg

DRUGS (22)
  1. ACETYLSALICYLIC ACID SRT [Concomitant]
     Dosage: 325 MG, QD
     Route: 048
     Dates: start: 20050916, end: 20050918
  2. INSULIN HUMAN [Concomitant]
     Dosage: UNK
     Route: 058
     Dates: start: 20050916, end: 20050924
  3. COREG [Concomitant]
     Dosage: 12.5 MG, UNK
     Route: 048
     Dates: start: 20050916, end: 20050918
  4. ZOCOR [Concomitant]
     Dosage: 40 MG, UNK
     Route: 048
     Dates: start: 20050916, end: 20050918
  5. NITROGLYCERIN [Concomitant]
     Dosage: 0.4 G, UNK
     Route: 048
     Dates: start: 20050916, end: 20050918
  6. IMDUR [Concomitant]
     Dosage: 30 MG, UNK
     Route: 048
     Dates: start: 20050916, end: 20050918
  7. SODIUM NITROPRUSSIDE [Concomitant]
     Dosage: 50MG/250ML
     Route: 042
     Dates: start: 20050918
  8. MIDAZOLAM [Concomitant]
     Dosage: 5MG/1ML
     Route: 042
     Dates: start: 20050918, end: 20050918
  9. TRASYLOL [Suspect]
     Indication: CORONARY ARTERY BYPASS
     Dosage: 1 ML TEST DOSE, 200 ML PUMP PRIME, THEN INFUSION
     Route: 042
     Dates: start: 20050918, end: 20050918
  10. GLIPIZIDE [Concomitant]
     Dosage: 10 MG, UNK
     Route: 048
     Dates: start: 20050916, end: 20050924
  11. AMIODARONE HCL [Concomitant]
     Dosage: 200 MG, UNK
     Route: 048
     Dates: start: 20050916
  12. PAPAVERIN [Concomitant]
     Dosage: 5 ML, UNK
     Route: 042
     Dates: start: 20050918, end: 20050918
  13. HEPARIN SODIUM [Concomitant]
     Dosage: 23000 U, UNK
     Route: 042
     Dates: start: 20050918
  14. ALBUMIN (HUMAN) [Concomitant]
     Dosage: 25PC/100ML
     Route: 042
     Dates: start: 20050918, end: 20050918
  15. HEPARIN SODIUM [Concomitant]
     Dosage: 25000UNITS/250ML
     Route: 042
     Dates: start: 20050916, end: 20050918
  16. NOREPINEPHRINE BITARTRATE [Concomitant]
     Dosage: 4MG/250ML
     Route: 042
     Dates: start: 20050918, end: 20050918
  17. ATENOLOL [Concomitant]
     Dosage: 50 MG, UNK
     Route: 048
     Dates: start: 20050916, end: 20050918
  18. NITROGLYCERIN [Concomitant]
     Dosage: 50MG/250ML
     Route: 042
     Dates: start: 20050918
  19. GLUCOPHAGE [Concomitant]
     Dosage: 850 MG, UNK
     Route: 048
     Dates: start: 20050916, end: 20050924
  20. LISINOPRIL [Concomitant]
     Dosage: 2.5 MG, QD
     Dates: start: 20050916, end: 20050918
  21. PROTAMINE SULFATE [Concomitant]
     Dosage: 250MG/25ML
     Route: 042
     Dates: start: 20050918, end: 20050918
  22. MEVACOR [Concomitant]
     Dosage: 80 MG, QD
     Route: 048
     Dates: start: 20050916, end: 20050918

REACTIONS (12)
  - RENAL IMPAIRMENT [None]
  - RENAL FAILURE [None]
  - PAIN [None]
  - ANXIETY [None]
  - FEAR [None]
  - MULTI-ORGAN FAILURE [None]
  - INJURY [None]
  - RENAL INJURY [None]
  - UNEVALUABLE EVENT [None]
  - EMOTIONAL DISTRESS [None]
  - STRESS [None]
  - CEREBROVASCULAR ACCIDENT [None]
